FAERS Safety Report 12881491 (Version 2)
Quarter: 2016Q4

REPORT INFORMATION
  Report Type: Report from Study
  Country: BR (occurrence: BR)
  Receive Date: 20161025
  Receipt Date: 20161212
  Transmission Date: 20170207
  Serious: Yes (Other)
  Sender: FDA-Public Use
  Company Number: PHHY2016BR091416

PATIENT
  Age: 66 Year
  Sex: Female
  Weight: 58 kg

DRUGS (3)
  1. AFINITOR [Suspect]
     Active Substance: EVEROLIMUS
     Indication: LUNG NEOPLASM MALIGNANT
     Dosage: 10 MG, QD (1 TABLET A DAY)
     Route: 048
     Dates: start: 201605
  2. SANDOSTATIN LAR DEPOT [Suspect]
     Active Substance: OCTREOTIDE ACETATE
     Indication: LUNG NEOPLASM MALIGNANT
     Dosage: 20 MG, QMO
     Route: 030
     Dates: start: 201512, end: 201605
  3. ROSULIB [Concomitant]
     Active Substance: ROSUVASTATIN
     Indication: BLOOD CHOLESTEROL INCREASED
     Dosage: 10 MG, QD
     Route: 048

REACTIONS (14)
  - Skin disorder [Unknown]
  - Photosensitivity reaction [Unknown]
  - Dermatitis [Recovering/Resolving]
  - Abdominal pain [Recovering/Resolving]
  - Arthralgia [Not Recovered/Not Resolved]
  - Dry skin [Unknown]
  - Peripheral swelling [Not Recovered/Not Resolved]
  - Dermatitis [Recovered/Resolved]
  - Aphthous ulcer [Unknown]
  - Weight decreased [Unknown]
  - Arthropathy [Unknown]
  - Drug ineffective [Unknown]
  - Oral pain [Recovering/Resolving]
  - Epigastric discomfort [Unknown]

NARRATIVE: CASE EVENT DATE: 201605
